FAERS Safety Report 8274028-8 (Version None)
Quarter: 2012Q2

REPORT INFORMATION
  Report Type: 
  Country: None (occurrence: None)
  Receive Date: 20120411
  Receipt Date: 20120406
  Transmission Date: 20120825
  Serious: Yes (Hospitalization, Other)
  Sender: FDA-Public Use
  Company Number: PHHY2012MX030106

PATIENT
  Sex: Male

DRUGS (2)
  1. DIOVAN HCT [Suspect]
     Indication: HYPERTENSION
     Dosage: 1 TABLET (160/12.5 MG) BY DAY
     Route: 048
     Dates: start: 20101025, end: 20120201
  2. METFORMIN HCL [Concomitant]
     Indication: DIABETES MELLITUS
     Dosage: UNK UKN, QD

REACTIONS (4)
  - HYPERTENSION [None]
  - EPISTAXIS [None]
  - PAIN IN EXTREMITY [None]
  - MYOCARDIAL INFARCTION [None]
